FAERS Safety Report 18362721 (Version 1)
Quarter: 2020Q4

REPORT INFORMATION
  Report Type: Spontaneous
  Country: PK (occurrence: PK)
  Receive Date: 20201008
  Receipt Date: 20201008
  Transmission Date: 20210114
  Serious: Yes (Other)
  Sender: FDA-Public Use
  Company Number: PK-AMERICAN REGENT INC-2020002032

PATIENT
  Age: 34 Year
  Sex: Female

DRUGS (1)
  1. VENOFER [Suspect]
     Active Substance: IRON SUCROSE
     Indication: ANAEMIA
     Dosage: UNK, 10 DOSES
     Route: 065

REACTIONS (3)
  - Anaemia [Unknown]
  - Drug ineffective [Unknown]
  - Maternal exposure during pregnancy [Recovered/Resolved]
